FAERS Safety Report 5433600-0 (Version None)
Quarter: 2007Q3

REPORT INFORMATION
  Report Type: 
  Country: None (occurrence: None)
  Receive Date: 20070831
  Receipt Date: 20070724
  Transmission Date: 20080115
  Serious: No
  Sender: FDA-Public Use
  Company Number: A0665770A

PATIENT
  Age: 67 Year
  Sex: Male

DRUGS (4)
  1. ALLI [Suspect]
     Dates: start: 20070623, end: 20070723
  2. AVANDAMET [Concomitant]
  3. INSULIN [Concomitant]
  4. METFORMIN HCL [Concomitant]

REACTIONS (1)
  - WEIGHT INCREASED [None]
